FAERS Safety Report 16171989 (Version 1)
Quarter: 2019Q2

REPORT INFORMATION
  Report Type: Spontaneous
  Country: RU (occurrence: RU)
  Receive Date: 20190409
  Receipt Date: 20190409
  Transmission Date: 20190711
  Serious: Yes (Life-Threatening, Hospitalization)
  Sender: FDA-Public Use
  Company Number: RU-VIVIMED-2017SP015441

PATIENT
  Age: 52 Year
  Sex: Female

DRUGS (1)
  1. AMLODIPINE [Suspect]
     Active Substance: AMLODIPINE BESYLATE
     Indication: PRODUCT USED FOR UNKNOWN INDICATION
     Dosage: 200 MG, UNKNOWN
     Route: 065

REACTIONS (24)
  - Pallor [Recovered/Resolved]
  - Neuromyopathy [Recovered/Resolved]
  - Cyanosis [Recovered/Resolved]
  - Diarrhoea [Recovered/Resolved]
  - Toxicity to various agents [Recovered/Resolved]
  - Palpitations [Recovered/Resolved]
  - Anuria [Recovered/Resolved]
  - Defect conduction intraventricular [Recovered/Resolved]
  - Asthenia [Recovered/Resolved]
  - Septic shock [Recovered/Resolved]
  - Acute hepatic failure [Recovered/Resolved]
  - Acute respiratory failure [Recovered/Resolved]
  - Suicide attempt [Unknown]
  - Livedo reticularis [Recovered/Resolved]
  - Vomiting [Recovered/Resolved]
  - Atrioventricular dissociation [Recovered/Resolved]
  - Sinus tachycardia [Recovered/Resolved]
  - Gastrointestinal hypomotility [Recovered/Resolved]
  - Acute kidney injury [Recovered/Resolved]
  - Dry skin [Recovered/Resolved]
  - Polyuria [Recovered/Resolved]
  - Multiple organ dysfunction syndrome [Recovered/Resolved]
  - Cardiac failure acute [Recovered/Resolved]
  - Left ventricular hypertrophy [Recovered/Resolved]

NARRATIVE: CASE EVENT DATE: 20150103
